FAERS Safety Report 11148521 (Version 1)
Quarter: 2015Q2

REPORT INFORMATION
  Report Type: Spontaneous
  Country: US (occurrence: None)
  Receive Date: 20150528
  Receipt Date: 20150528
  Transmission Date: 20150821
  Serious: Yes (Hospitalization)
  Sender: FDA-Public Use
  Company Number: None

PATIENT
  Age: 21 Year
  Sex: Female
  Weight: 46.27 kg

DRUGS (3)
  1. SERTRALINE [Concomitant]
     Active Substance: SERTRALINE HYDROCHLORIDE
  2. PRENATAL VITAMINS [Concomitant]
     Active Substance: VITAMINS
  3. SKYLA [Suspect]
     Active Substance: LEVONORGESTREL

REACTIONS (8)
  - Body temperature increased [None]
  - Malaise [None]
  - Procedural pain [None]
  - Post procedural complication [None]
  - Pain [None]
  - Device dislocation [None]
  - Abdominal pain [None]
  - Bedridden [None]

NARRATIVE: CASE EVENT DATE: 20150414
